FAERS Safety Report 8214800-3 (Version None)
Quarter: 2012Q1

REPORT INFORMATION
  Report Type: 
  Country: None (occurrence: None)
  Receive Date: 20120316
  Receipt Date: 20120308
  Transmission Date: 20120608
  Serious: Yes (Other)
  Sender: FDA-Public Use
  Company Number: US-JNJFOC-20120306324

PATIENT
  Sex: Male

DRUGS (1)
  1. HALDOL [Suspect]
     Indication: SCHIZOPHRENIA, PARANOID TYPE
     Route: 048

REACTIONS (2)
  - DRUG DOSE OMISSION [None]
  - PSYCHOTIC DISORDER [None]
